FAERS Safety Report 9231305 (Version 1)
Quarter: 2013Q1

REPORT INFORMATION
  Report Type: Spontaneous
  Country: US (occurrence: None)
  Receive Date: 20121031
  Receipt Date: 20121031
  Transmission Date: 20140127
  Serious: No
  Sender: FDA-Public Use
  Company Number: PHEH2012US015754

PATIENT
  Age: 54 Year
  Sex: Female

DRUGS (3)
  1. GILENYA [Suspect]
     Indication: MULTIPLE SCLEROSIS
     Route: 048
     Dates: start: 20110417
  2. GABAPENTIN (GABAPENTIN) [Concomitant]
  3. BACLOFEN (BACLOFEN) [Concomitant]

REACTIONS (1)
  - Skin depigmentation [None]
